FAERS Safety Report 5209044-3 (Version None)
Quarter: 2007Q1

REPORT INFORMATION
  Report Type: 
  Country: None (occurrence: None)
  Receive Date: 20070116
  Receipt Date: 20070105
  Transmission Date: 20070707
  Serious: Yes (Other)
  Sender: FDA-Public Use
  Company Number: 2007GB00023

PATIENT
  Age: 54 Year
  Sex: Male

DRUGS (47)
  1. PROPOFOL [Suspect]
     Route: 042
  2. PARACETAMOL [Suspect]
     Route: 065
  3. OMEPRAZOLE [Suspect]
     Route: 042
  4. ACTRAPID [Suspect]
     Route: 042
  5. ALFENTANIL [Suspect]
     Route: 065
  6. AMOXICILLIN [Suspect]
     Route: 042
  7. AQUASEPT [Suspect]
     Route: 065
  8. BACTROBAN [Suspect]
     Route: 065
  9. CALCIUM CHLORIDE [Suspect]
     Route: 065
  10. CEFTRIAXONE [Suspect]
     Route: 042
  11. CALCIUM GLUCONATE [Suspect]
     Route: 042
  12. CLEXANE [Suspect]
     Route: 058
  13. DOBUTAMINE HCL [Suspect]
     Route: 065
  14. FLUCONAZOLE [Suspect]
     Route: 042
  15. FRAGMIN [Suspect]
     Route: 065
  16. FUROSEMIDE [Suspect]
     Route: 042
  17. FUROSEMIDE [Suspect]
     Route: 048
  18. HYDROCORTISONE [Suspect]
     Dosage: 100 MG TOTAL
     Route: 065
  19. LACTULOSE [Suspect]
     Route: 065
  20. LANSOPRAZOLE [Suspect]
     Route: 065
  21. LORAZEPAM [Suspect]
     Route: 065
  22. MAGNESIUM SULFATE [Suspect]
     Route: 065
  23. NORADRENALINE [Suspect]
     Route: 065
  24. PIRITON [Suspect]
     Route: 042
  25. POTASSIUM CHLORIDE [Suspect]
     Route: 065
  26. POTASSIUM PHOSPHATES [Suspect]
     Route: 065
  27. SALBUTAMOL [Suspect]
     Route: 065
  28. SANDO-K [Suspect]
     Route: 065
  29. SILVER SULPHADIAZINE [Suspect]
     Route: 061
  30. SIMVASTATIN [Suspect]
     Route: 065
  31. SODIUM BICARBONATE [Suspect]
     Route: 042
  32. SODIUM CHLORIDE [Suspect]
     Route: 042
  33. THIAMIN [Suspect]
     Route: 048
  34. TINZAPARIN [Suspect]
     Route: 065
  35. VITAMIN K [Suspect]
     Route: 065
  36. AMOXICILLIN [Concomitant]
     Route: 048
     Dates: start: 20060913
  37. ASPIRIN [Concomitant]
     Route: 048
  38. ATROVENT [Concomitant]
     Route: 065
  39. CIPROFLOXACIN [Concomitant]
     Route: 042
  40. AMOXICILLIN + CLAVULANATE POTASSIUM [Concomitant]
     Route: 065
     Dates: start: 20060913
  41. ERYTHROMYCIN [Concomitant]
     Route: 065
  42. METOCLOPRAMIDE [Concomitant]
     Route: 042
  43. MIDODRINE [Concomitant]
     Route: 048
  44. PANTOPRAZOLE SODIUM [Concomitant]
     Route: 042
  45. TAZOCIN [Concomitant]
     Route: 065
  46. VANCOMYCIN [Concomitant]
     Route: 042
  47. ZOPICLONE [Concomitant]
     Route: 048

REACTIONS (1)
  - TOXIC EPIDERMAL NECROLYSIS [None]
